FAERS Safety Report 17196397 (Version 4)
Quarter: 2021Q2

REPORT INFORMATION
  Report Type: Spontaneous
  Country: FR (occurrence: FR)
  Receive Date: 20191224
  Receipt Date: 20210426
  Transmission Date: 20210716
  Serious: Yes (Death, Hospitalization, Other)
  Sender: FDA-Public Use
  Company Number: FR-CELGENEUS-FRA-20191208079

PATIENT
  Age: 60 Year
  Sex: Female

DRUGS (10)
  1. IXAZOMIB [Suspect]
     Active Substance: IXAZOMIB
     Indication: PLASMA CELL MYELOMA
     Route: 048
     Dates: start: 20181221
  2. INNOHEP [Concomitant]
     Active Substance: TINZAPARIN SODIUM
     Indication: PROPHYLAXIS
     Route: 058
     Dates: start: 20180813
  3. VELCADE [Suspect]
     Active Substance: BORTEZOMIB
     Indication: PLASMA CELL MYELOMA
     Route: 065
     Dates: start: 20190418, end: 20190513
  4. CARFILZOMIB [Suspect]
     Active Substance: CARFILZOMIB
     Indication: PRODUCT USED FOR UNKNOWN INDICATION
     Route: 065
     Dates: start: 20190517, end: 20190517
  5. DEXAMETHASONE. [Concomitant]
     Active Substance: DEXAMETHASONE
     Indication: PLASMA CELL MYELOMA
     Route: 065
     Dates: start: 20190116, end: 20190409
  6. DARZALEX [Concomitant]
     Active Substance: DARATUMUMAB
     Indication: PRODUCT USED FOR UNKNOWN INDICATION
     Route: 065
     Dates: start: 20190116, end: 20190409
  7. DARZALEX [Concomitant]
     Active Substance: DARATUMUMAB
     Route: 065
     Dates: end: 20190517
  8. THALIDOMIDE [Suspect]
     Active Substance: THALIDOMIDE
     Indication: PLASMA CELL MYELOMA
     Route: 048
     Dates: start: 20190418, end: 20190513
  9. DEXAMETHASONE. [Concomitant]
     Active Substance: DEXAMETHASONE
     Route: 065
     Dates: start: 20190418, end: 20190513
  10. DOXORUBICIN [Concomitant]
     Active Substance: DOXORUBICIN
     Indication: PLASMA CELL MYELOMA
     Route: 048
     Dates: start: 20190418, end: 20190513

REACTIONS (24)
  - Hepatic cirrhosis [Unknown]
  - General physical health deterioration [Unknown]
  - Loss of personal independence in daily activities [Unknown]
  - Anaemia [Recovering/Resolving]
  - Ascites [Unknown]
  - Haemorrhoidal haemorrhage [Recovered/Resolved]
  - Thrombocytopenia [Recovering/Resolving]
  - Body dysmorphic disorder [Unknown]
  - Epistaxis [Recovering/Resolving]
  - Pruritus [Recovering/Resolving]
  - Dyspepsia [Unknown]
  - Joint ankylosis [Unknown]
  - Anxiety [Unknown]
  - Sleep disorder [Unknown]
  - Jaundice [Recovering/Resolving]
  - Hepatocellular injury [Unknown]
  - Decubitus ulcer [Unknown]
  - Disease progression [Unknown]
  - Death [Fatal]
  - Pain [Unknown]
  - Constipation [Unknown]
  - Malnutrition [Unknown]
  - Cholestasis [Unknown]
  - Diarrhoea [Unknown]

NARRATIVE: CASE EVENT DATE: 2018
